FAERS Safety Report 6838694-3 (Version None)
Quarter: 2010Q3

REPORT INFORMATION
  Report Type: 
  Country: None (occurrence: None)
  Receive Date: 20100713
  Receipt Date: 20070609
  Transmission Date: 20110219
  Serious: Yes (Other)
  Sender: FDA-Public Use
  Company Number: US-PFIZER INC-2007040169

PATIENT
  Sex: Male
  Weight: 81.6 kg

DRUGS (13)
  1. CHANTIX [Suspect]
     Indication: EX-TOBACCO USER
     Route: 048
     Dates: start: 20070507, end: 20070512
  2. OMEPRAZOLE [Concomitant]
  3. SINGULAIR [Concomitant]
  4. LOVASTATIN [Concomitant]
  5. ALL OTHER THERAPEUTIC PRODUCTS [Concomitant]
  6. FLUOXETINE HCL [Concomitant]
  7. ADVAIR DISKUS 100/50 [Concomitant]
     Dosage: 500/50 TWO TIMES  A DAY
  8. ALBUTEROL [Concomitant]
     Dosage: FOUR TIMES DAILY WHEN NEEDED
  9. COMBIVENT [Concomitant]
  10. DUONEB [Concomitant]
  11. FLUTICASONE PROPIONATE [Concomitant]
     Route: 045
  12. LITHIUM [Concomitant]
  13. SPIRIVA [Concomitant]

REACTIONS (7)
  - ABDOMINAL PAIN UPPER [None]
  - DIZZINESS [None]
  - DRUG INEFFECTIVE [None]
  - MALAISE [None]
  - NAUSEA [None]
  - VOMITING [None]
  - WEIGHT DECREASED [None]
